FAERS Safety Report 10682663 (Version 1)
Quarter: 2014Q4

REPORT INFORMATION
  Report Type: Spontaneous
  Country: UA (occurrence: UA)
  Receive Date: 20141230
  Receipt Date: 20141230
  Transmission Date: 20150529
  Serious: Yes (Life-Threatening)
  Sender: FDA-Public Use
  Company Number: UA-PFIZER INC-2014357825

PATIENT
  Age: 64 Year
  Sex: Female

DRUGS (3)
  1. VFEND [Suspect]
     Active Substance: VORICONAZOLE
     Dosage: 600 MG, DAILY
     Route: 042
     Dates: start: 20141011, end: 20141110
  2. VFEND [Suspect]
     Active Substance: VORICONAZOLE
     Indication: BRONCHOPULMONARY ASPERGILLOSIS
     Dosage: 800 MG, DAILY
     Route: 042
     Dates: start: 20141010, end: 20141010
  3. VFEND [Suspect]
     Active Substance: VORICONAZOLE
     Indication: BRONCHOPULMONARY ASPERGILLOSIS
     Dosage: UNK
     Route: 048
     Dates: start: 20141111

REACTIONS (2)
  - Quadriparesis [Recovered/Resolved]
  - Hypokalaemia [Recovered/Resolved]

NARRATIVE: CASE EVENT DATE: 20141015
